FAERS Safety Report 24161243 (Version 1)
Quarter: 2024Q3

REPORT INFORMATION
  Report Type: Spontaneous
  Country: JP (occurrence: JP)
  Receive Date: 20240801
  Receipt Date: 20240801
  Transmission Date: 20241017
  Serious: Yes (Death, Other)
  Sender: RANBAXY
  Company Number: JP-SUN PHARMACEUTICAL INDUSTRIES LTD-2024R1-457871

PATIENT
  Age: 69 Year
  Sex: Male

DRUGS (10)
  1. ILUMYA [Suspect]
     Active Substance: TILDRAKIZUMAB-ASMN
     Indication: Psoriasis
     Dosage: 100 MILLIGRAM/DOSE
     Route: 058
     Dates: start: 20220602
  2. ILUMYA [Suspect]
     Active Substance: TILDRAKIZUMAB-ASMN
     Dosage: 100 MILLIGRAM
     Route: 058
     Dates: start: 20220630
  3. ILUMYA [Suspect]
     Active Substance: TILDRAKIZUMAB-ASMN
     Dosage: 100 MILLIGRAM
     Route: 058
     Dates: start: 20220922
  4. ILUMYA [Suspect]
     Active Substance: TILDRAKIZUMAB-ASMN
     Dosage: 100 MILLIGRAM
     Route: 058
     Dates: start: 20221215
  5. ILUMYA [Suspect]
     Active Substance: TILDRAKIZUMAB-ASMN
     Dosage: 100 MILLIGRAM
     Route: 058
     Dates: start: 20230309
  6. ILUMYA [Suspect]
     Active Substance: TILDRAKIZUMAB-ASMN
     Dosage: 100 MILLIGRAM/DOSE
     Route: 058
     Dates: start: 20230601
  7. BETAMETHASONE DIPROPIONATE\CALCIPOTRIENE MONOHYDRATE [Concomitant]
     Active Substance: BETAMETHASONE DIPROPIONATE\CALCIPOTRIENE MONOHYDRATE
     Indication: Psoriasis
     Dosage: UNK
     Route: 062
  8. RINDERON VG lotion [Concomitant]
     Indication: Psoriasis
     Dosage: UNK
     Route: 062
  9. LOCOID Ointment [Concomitant]
     Indication: Psoriasis
     Dosage: UNK
     Route: 062
  10. EPINASTINE HYDROCHLORIDE tablet [Concomitant]
     Indication: Psoriasis
     Dosage: UNK
     Route: 048

REACTIONS (1)
  - Death [Fatal]

NARRATIVE: CASE EVENT DATE: 20231006
